FAERS Safety Report 22081027 (Version 1)
Quarter: 2023Q1

REPORT INFORMATION
  Report Type: Report from Study
  Country: DE (occurrence: DE)
  Receive Date: 20230309
  Receipt Date: 20230309
  Transmission Date: 20230418
  Serious: Yes (Life-Threatening)
  Sender: FDA-Public Use
  Company Number: DE-GE HEALTHCARE-2023CSU001317

PATIENT
  Age: 69 Year
  Sex: Male
  Weight: 78 kg

DRUGS (4)
  1. GADOLINIUM [Suspect]
     Active Substance: GADOLINIUM
     Indication: Angiocardiogram
     Dosage: 40 ML, SINGLE
     Route: 013
  2. GADOLINIUM [Suspect]
     Active Substance: GADOLINIUM
     Indication: Coronary artery disease
  3. SODIUM CHLORIDE [Concomitant]
     Active Substance: SODIUM CHLORIDE
     Indication: Angiocardiogram
     Route: 013
  4. SODIUM CHLORIDE [Concomitant]
     Active Substance: SODIUM CHLORIDE
     Indication: Coronary artery disease

REACTIONS (2)
  - Ventricular tachycardia [Recovered/Resolved]
  - Off label use [Recovered/Resolved]
